FAERS Safety Report 7508590-7 (Version None)
Quarter: 2011Q2

REPORT INFORMATION
  Report Type: 
  Country: None (occurrence: None)
  Receive Date: 20110527
  Receipt Date: 20100902
  Transmission Date: 20111010
  Serious: No
  Sender: FDA-Public Use
  Company Number: A0879855A

PATIENT
  Age: 47 Year
  Sex: Male
  Weight: 81.3 kg

DRUGS (18)
  1. FISH OIL [Concomitant]
     Dosage: 1000MG PER DAY
     Route: 048
  2. FLAXSEED OIL [Concomitant]
     Dosage: 1000MG PER DAY
     Route: 048
  3. JANUVIA [Concomitant]
     Dosage: 50MG PER DAY
     Route: 048
  4. NORCO [Concomitant]
     Dosage: 1TAB AS REQUIRED
     Route: 048
  5. LEVEMIR [Concomitant]
     Route: 058
  6. MORPHINE SULFATE [Concomitant]
     Dosage: 50MG AS REQUIRED
     Route: 048
  7. PREDNISONE [Suspect]
     Dosage: 10MG PER DAY
     Route: 048
  8. METHOTREXATE [Concomitant]
     Dosage: 2.5MG THREE TIMES PER WEEK
     Route: 048
  9. PLAQUENIL [Concomitant]
     Dosage: 200MG TWICE PER DAY
     Route: 048
  10. REVATIO [Concomitant]
     Dosage: 20MG THREE TIMES PER DAY
  11. CALCIUM + D [Concomitant]
     Route: 048
  12. LASIX [Concomitant]
     Dosage: 20MG PER DAY
     Route: 048
  13. FLOLAN [Suspect]
     Indication: PULMONARY ARTERIAL HYPERTENSION
     Dosage: 57NGKM UNKNOWN
     Route: 042
     Dates: start: 19991018
  14. OMEPRAZOLE [Concomitant]
     Dosage: 60MG AS REQUIRED
     Route: 048
  15. SPIRONOLACTONE [Concomitant]
     Dosage: 50MG PER DAY
     Route: 048
  16. FLOLAN [Suspect]
     Indication: PULMONARY ARTERIAL HYPERTENSION
     Route: 042
  17. DIGOXIN [Concomitant]
     Dosage: 25MG PER DAY
     Route: 048
  18. FLEXERIL [Concomitant]
     Dosage: 10MG AT NIGHT
     Route: 048

REACTIONS (4)
  - BONE PAIN [None]
  - MYALGIA [None]
  - PAIN IN JAW [None]
  - ALOPECIA [None]
